FAERS Safety Report 18158168 (Version 1)
Quarter: 2020Q3

REPORT INFORMATION
  Report Type: Spontaneous
  Country: FR (occurrence: FR)
  Receive Date: 20200817
  Receipt Date: 20200817
  Transmission Date: 20201103
  Serious: Yes (Other)
  Sender: FDA-Public Use
  Company Number: FR-TEVA-2020-FR-1815890

PATIENT
  Age: 70 Year
  Sex: Male

DRUGS (5)
  1. PROBIOLOG [Concomitant]
     Dosage: 1 DOSAGE FORMS DAILY; AT MIDDAY
     Dates: start: 2011
  2. LOPERAMIDE TEVA 2 MG [Suspect]
     Active Substance: LOPERAMIDE HYDROCHLORIDE
     Indication: FUNCTIONAL GASTROINTESTINAL DISORDER
     Dosage: 1.3333 MILLIGRAM DAILY; 2 DF THE MORNING, 2 DF AT MIDDAY AND 2 DF IN THE EVENING
     Dates: start: 2010
  3. SMECTA ORANGE?VANILLE [Concomitant]
     Dosage: 1 DF AT 10 AM AND 1 DF AT 4 PM
     Dates: start: 2006
  4. NIFUROXAZIDE TEVA 200 MG [Suspect]
     Active Substance: NIFUROXAZIDE
     Indication: DIARRHOEA
     Dosage: 1 DF IN THE MORNING AND ONE MORE IN CASE OF DIARRHEA
     Dates: start: 2010
  5. QUESTRAN [Concomitant]
     Active Substance: CHOLESTYRAMINE
     Dosage: 1 DF AT MIDDAY AND 1 DF IN THE EVENING
     Dates: start: 200302

REACTIONS (1)
  - Prostate cancer [Unknown]

NARRATIVE: CASE EVENT DATE: 20121013
